FAERS Safety Report 6785818-2 (Version None)
Quarter: 2010Q2

REPORT INFORMATION
  Report Type: 
  Country: None (occurrence: None)
  Receive Date: 20100621
  Receipt Date: 20100621
  Transmission Date: 20101027
  Serious: No
  Sender: FDA-Public Use
  Company Number: None

PATIENT

DRUGS (1)
  1. LUCENTIS [Suspect]
     Indication: MACULAR DEGENERATION
     Dosage: 0.5MG EVERY 4-5 WEEK'S INTRAOCULAR
     Route: 031
     Dates: start: 19980809, end: 20100616

REACTIONS (4)
  - ALOPECIA [None]
  - CEREBRAL MICROANGIOPATHY [None]
  - NEUROPATHY PERIPHERAL [None]
  - RASH [None]
